FAERS Safety Report 4566583-6 (Version None)
Quarter: 2005Q1

REPORT INFORMATION
  Report Type: 
  Country: None (occurrence: None)
  Receive Date: 20050201
  Receipt Date: 20050131
  Transmission Date: 20050727
  Serious: Yes (Hospitalization)
  Sender: FDA-Public Use
  Company Number: PHNU2005DE00737

PATIENT
  Sex: Male

DRUGS (3)
  1. TRILEPTAL [Suspect]
     Route: 064
  2. TEGRETOL [Concomitant]
     Route: 064
  3. NOVALGIN /SWE/ [Concomitant]
     Route: 062

REACTIONS (2)
  - BLOOD BILIRUBIN INCREASED [None]
  - DRUG EXPOSURE DURING PREGNANCY [None]
